FAERS Safety Report 4724304-8 (Version None)
Quarter: 2005Q3

REPORT INFORMATION
  Report Type: 
  Country: None (occurrence: None)
  Receive Date: 20050720
  Receipt Date: 20050720
  Transmission Date: 20060218
  Serious: Yes (Hospitalization)
  Sender: FDA-Public Use
  Company Number: None

PATIENT
  Age: 29 Year
  Sex: Male
  Weight: 94.4 kg

DRUGS (2)
  1. CITALOPRAM [Suspect]
     Indication: DEPRESSION
     Dosage: 20 MG  P.O.  DAILY
     Route: 048
     Dates: start: 20050311, end: 20050422
  2. ACETAMINOPHEN W/ CODEINE #4 [Concomitant]

REACTIONS (1)
  - TRISMUS [None]
